FAERS Safety Report 6851316-0 (Version None)
Quarter: 2010Q3

REPORT INFORMATION
  Report Type: 
  Country: None (occurrence: None)
  Receive Date: 20100717
  Receipt Date: 20080114
  Transmission Date: 20110219
  Serious: No
  Sender: FDA-Public Use
  Company Number: US-PFIZER INC-2008005909

PATIENT
  Sex: Female
  Weight: 112.27 kg

DRUGS (16)
  1. CHANTIX [Suspect]
     Indication: SMOKING CESSATION THERAPY
     Dates: start: 20080110
  2. CALCIUM [Concomitant]
  3. PALIPERIDONE [Concomitant]
  4. CYMBALTA [Concomitant]
  5. BUPROPION [Concomitant]
  6. OMEPRAZOLE [Concomitant]
  7. GABAPENTIN [Concomitant]
  8. FUROSEMIDE [Concomitant]
  9. FIBRE, DIETARY [Concomitant]
  10. SYNTHROID [Concomitant]
  11. MULTI-VITAMINS [Concomitant]
  12. OXYBUTYNIN CHLORIDE [Concomitant]
  13. PROVIGIL [Concomitant]
  14. ACETYLSALICYLIC ACID [Concomitant]
  15. LIPITOR [Concomitant]
  16. POTASSIUM CHLORIDE [Concomitant]

REACTIONS (3)
  - ABDOMINAL PAIN UPPER [None]
  - HEADACHE [None]
  - NAUSEA [None]
